FAERS Safety Report 9167924 (Version 1)
Quarter: 2013Q1

REPORT INFORMATION
  Report Type: Spontaneous
  Country: FR (occurrence: None)
  Receive Date: 20130304
  Receipt Date: 20130304
  Transmission Date: 20140127
  Serious: Yes (Life-Threatening, Hospitalization)
  Sender: FDA-Public Use
  Company Number: 0220648

PATIENT
  Age: 70 Year
  Sex: Female

DRUGS (1)
  1. TACHOSIL [Suspect]
     Indication: PANCREATECTOMY
     Dosage: DURATION 1 DAYS
     Route: 025
     Dates: start: 20101019, end: 20101019

REACTIONS (3)
  - Pulmonary embolism [None]
  - Sciatica [None]
  - Pulmonary fibrosis [None]
